FAERS Safety Report 6911991-9 (Version None)
Quarter: 2010Q3

REPORT INFORMATION
  Report Type: 
  Country: None (occurrence: None)
  Receive Date: 20100806
  Receipt Date: 20071207
  Transmission Date: 20110219
  Serious: No
  Sender: FDA-Public Use
  Company Number: US-PFIZER INC-2007008456

PATIENT
  Sex: Female

DRUGS (1)
  1. DILANTIN [Suspect]
     Dates: end: 19750101

REACTIONS (2)
  - ANAL FISSURE [None]
  - FURUNCLE [None]
